FAERS Safety Report 8654780 (Version 4)
Quarter: 2013Q3

REPORT INFORMATION
  Report Type: Spontaneous
  Country: US (occurrence: US)
  Receive Date: 20120709
  Receipt Date: 20130730
  Transmission Date: 20140515
  Serious: Yes (Other)
  Sender: FDA-Public Use
  Company Number: US-PFIZER INC-2012159892

PATIENT
  Age: 52 Year
  Sex: Female
  Weight: 83.45 kg

DRUGS (19)
  1. NEURONTIN [Suspect]
     Indication: NEUROPATHY PERIPHERAL
     Dosage: UNK
     Route: 048
  2. LYRICA [Suspect]
     Indication: NEUROPATHY PERIPHERAL
     Dosage: 100 MG, 3X/DAY
     Route: 048
     Dates: end: 20120629
  3. LYRICA [Suspect]
     Indication: DIABETIC NEUROPATHY
  4. ALDACTONE [Suspect]
     Dosage: UNK
  5. TRAMADOL [Concomitant]
     Indication: PAIN
     Dosage: UNK
  6. TRICOR [Concomitant]
     Indication: BLOOD CHOLESTEROL INCREASED
     Dosage: UNK
  7. INSULIN [Concomitant]
     Indication: DIABETES MELLITUS
     Dosage: UNK
  8. METFORMIN [Concomitant]
     Indication: DIABETES MELLITUS
     Dosage: UNK
  9. LANTUS [Concomitant]
     Indication: DIABETES MELLITUS
     Dosage: UNK
  10. HUMALOG [Concomitant]
     Indication: DIABETES MELLITUS
     Dosage: UNK
  11. METOPROLOL [Concomitant]
     Indication: HYPERTENSION
     Dosage: UNK
  12. LISINOPRIL [Concomitant]
     Indication: HYPERTENSION
     Dosage: UNK
  13. CLONIDINE [Concomitant]
     Indication: HYPERTENSION
     Dosage: UNK
  14. AMLODIPINE [Concomitant]
     Indication: HYPERTENSION
     Dosage: UNK
  15. DOXAZOSIN [Concomitant]
     Indication: HYPERTENSION
     Dosage: UNK
  16. HYDRALAZINE [Concomitant]
     Indication: HYPERTENSION
     Dosage: UNK
  17. HYDROCHLOROTHIAZIDE [Concomitant]
     Indication: HYPERTENSION
     Dosage: UNK
  18. LOSARTAN [Concomitant]
     Indication: HYPERTENSION
     Dosage: UNK
  19. ASPIRIN [Concomitant]
     Dosage: UNK, 1X/DAY

REACTIONS (7)
  - Fall [Unknown]
  - Grip strength decreased [Unknown]
  - Blood glucose increased [Unknown]
  - Ankle fracture [Unknown]
  - Memory impairment [Unknown]
  - Tremor [Not Recovered/Not Resolved]
  - Burning sensation [Not Recovered/Not Resolved]
